FAERS Safety Report 17194821 (Version 1)
Quarter: 2020Q1

REPORT INFORMATION
  Report Type: Spontaneous
  Country: US (occurrence: US)
  Receive Date: 20191223
  Receipt Date: 20191223
  Transmission Date: 20200409
  Serious: No
  Sender: FDA-Public Use
  Company Number: None

PATIENT
  Age: 31 Year
  Sex: Female

DRUGS (16)
  1. BACLOFEN 20MG TAB [Concomitant]
  2. LEVALBUTEROL 1.25MG NEB [Concomitant]
  3. DIAZEPAM 5MG/5ML [Concomitant]
  4. ONFI 2.5MG/ML SUSP [Concomitant]
  5. LORATADINE 10MG [Concomitant]
     Active Substance: LORATADINE
  6. GLYCOPYRROLATE 1MG [Concomitant]
  7. KLOR-CON POWDER PKTS [Concomitant]
  8. METOCLOPRAMIDE 5MG/ML [Concomitant]
     Active Substance: METOCLOPRAMIDE
  9. WARFARIN 2MG AND 1MG [Concomitant]
  10. BETHKIS [Suspect]
     Active Substance: TOBRAMYCIN
     Indication: PSEUDOMONAS TEST POSITIVE
     Route: 055
  11. IPRATROPIUM NEB [Concomitant]
  12. LEVOFLOXACIN 500MG [Concomitant]
     Active Substance: LEVOFLOXACIN
  13. PULMOZYME 1MG/ML NEB [Concomitant]
  14. MONTELUKAST [Concomitant]
     Active Substance: MONTELUKAST SODIUM
  15. PREVACID 30MG SOLUTAB [Concomitant]
  16. LAMICTAL ODT 200MG [Concomitant]

REACTIONS (1)
  - Respiratory rate decreased [None]

NARRATIVE: CASE EVENT DATE: 20191223
